FAERS Safety Report 7088100-1 (Version None)
Quarter: 2010Q4

REPORT INFORMATION
  Report Type: 
  Country: None (occurrence: None)
  Receive Date: 20101108
  Receipt Date: 20101025
  Transmission Date: 20110411
  Serious: Yes (Hospitalization)
  Sender: FDA-Public Use
  Company Number: US-ELI_LILLY_AND_COMPANY-US201002007080

PATIENT
  Sex: Female

DRUGS (8)
  1. FORTEO [Suspect]
     Indication: OSTEOPOROSIS
     Dosage: 20 UG, DAILY (1/D)
     Route: 058
     Dates: start: 20090602, end: 20100101
  2. FORTEO [Suspect]
     Dosage: 20 UG, DAILY (1/D)
     Dates: start: 20100101
  3. WELCHOL [Concomitant]
     Dosage: 625 MG, DAILY (1/D)
  4. AMLODIPINE [Concomitant]
     Indication: BLOOD PRESSURE
  5. PROTONIX [Concomitant]
     Dosage: UNK, DAILY (1/D)
  6. CALCIUM [Concomitant]
     Dosage: UNK, DAILY (1/D)
  7. VITAMIN D [Concomitant]
     Dosage: 50000 U, WEEKLY (1/W)
  8. VITAMIN D [Concomitant]
     Dosage: 2000 U, DAILY (1/D)

REACTIONS (19)
  - ABDOMINAL DISCOMFORT [None]
  - ABDOMINAL PAIN UPPER [None]
  - ANAEMIA [None]
  - BACK DISORDER [None]
  - BACK PAIN [None]
  - CHEST PAIN [None]
  - DIVERTICULITIS [None]
  - DYSSTASIA [None]
  - FATIGUE [None]
  - FEELING ABNORMAL [None]
  - GASTRIC ULCER [None]
  - GASTROINTESTINAL INFECTION [None]
  - HAEMORRHAGE [None]
  - INFLUENZA [None]
  - INVESTIGATION [None]
  - LARGE INTESTINAL ULCER [None]
  - MENTAL DISORDER [None]
  - MUSCLE SPASMS [None]
  - OSTEOPOROSIS [None]
